FAERS Safety Report 24079092 (Version 2)
Quarter: 2024Q3

REPORT INFORMATION
  Report Type: Spontaneous
  Country: US (occurrence: US)
  Receive Date: 20240711
  Receipt Date: 20240715
  Transmission Date: 20241016
  Serious: Yes (Other)
  Sender: PFIZER
  Company Number: US-MLMSERVICE-20240701-PI117642-00272-1

PATIENT
  Age: 20 Year
  Sex: Female

DRUGS (1)
  1. DEPO-PROVERA [Suspect]
     Active Substance: MEDROXYPROGESTERONE ACETATE
     Indication: Contraception
     Dosage: SHOT, APPROXIMATELY 5 YEARS

REACTIONS (4)
  - Spinal compression fracture [Recovering/Resolving]
  - Spinal osteoarthritis [Recovering/Resolving]
  - Intervertebral disc degeneration [Recovering/Resolving]
  - Osteoporosis [Recovering/Resolving]
